FAERS Safety Report 8826209 (Version 1)
Quarter: 2012Q4

REPORT INFORMATION
  Report Type: 
  Country: US (occurrence: US)
  Receive Date: 20121005
  Receipt Date: 20121005
  Transmission Date: 20130627
  Serious: Yes (Hospitalization, Other)
  Sender: FDA-Public Use
  Company Number: US-BAYER-2012-102914

PATIENT
  Age: 37 Year
  Sex: Female
  Weight: 68.97 kg

DRUGS (14)
  1. YASMIN [Suspect]
  2. HYDROCHLOROTHIAZIDE [Concomitant]
     Dosage: 25 mg, QD
     Route: 048
     Dates: start: 20070212
  3. IBUPROFEN [Concomitant]
     Dosage: 800 mg, UNK
     Dates: start: 20070215
  4. CLINDAMYCIN [Concomitant]
     Dosage: 150 mg, UNK
     Dates: start: 20070205, end: 20070220
  5. ADVAIR [Concomitant]
     Dosage: 250-50, 1 puff twice a day
  6. ALEVE [Concomitant]
     Indication: HEADACHE
     Dosage: UNK UNK, PRN
  7. LEXAPRO [Concomitant]
     Dosage: 20 mg, QD
     Route: 048
     Dates: start: 20061108, end: 20071018
  8. LITHIUM CARBONATE [Concomitant]
     Dosage: 300 to 600 mg, TID
     Route: 048
     Dates: start: 20070102, end: 20080321
  9. ABILIFY [Concomitant]
     Dosage: 2.5 to 40 mg, QD
     Route: 048
     Dates: start: 20060201, end: 20081222
  10. ALBUTEROL [Concomitant]
     Dosage: 2 puffs prn every 6 hours
     Dates: start: 20011002, end: 20100713
  11. LEVOTHYROXINE [Concomitant]
     Dosage: 88 to 176 mcg once a day, QD
     Route: 048
     Dates: start: 20070125, end: 20120204
  12. SYNTHROID [Concomitant]
     Dosage: 88 to 176 mcg, QD
     Route: 048
     Dates: start: 20031127, end: 20111228
  13. HYDROCODONE W/ACETAMINOPHEN [Concomitant]
     Indication: PAIN
     Dosage: 500 mg-5 mg, 1 or 2 prn(interpreted as as needed) every 4 to 6 hours
     Route: 048
     Dates: start: 20070205, end: 20120109
  14. MORPHINE [Concomitant]

REACTIONS (2)
  - Pulmonary embolism [Recovered/Resolved]
  - Cholelithiasis [None]
